FAERS Safety Report 4811586-7 (Version None)
Quarter: 2005Q4

REPORT INFORMATION
  Report Type: 
  Country: None (occurrence: None)
  Receive Date: 20051027
  Receipt Date: 20050928
  Transmission Date: 20060501
  Serious: Yes (Death, Hospitalization)
  Sender: FDA-Public Use
  Company Number: ES-MERCK-0509ESP00040

PATIENT
  Age: 88 Year
  Sex: Female

DRUGS (13)
  1. VIOXX [Suspect]
     Route: 048
     Dates: start: 20000801, end: 20040301
  2. DEXKETOPROFEN TROMETHAMINE [Concomitant]
     Route: 065
  3. MAGALDRATE [Concomitant]
     Route: 065
  4. CALCIUM PIDOLATE [Concomitant]
     Route: 065
  5. MEBEVERINE HYDROCHLORIDE [Concomitant]
     Route: 065
  6. OMEPRAZOLE [Suspect]
     Route: 065
  7. RANITIDINE [Concomitant]
     Route: 065
  8. FERROUS SULFATE [Concomitant]
     Route: 065
  9. ALMAGATE [Concomitant]
     Route: 065
  10. LEUCOVORIN CALCIUM [Concomitant]
     Route: 065
  11. NITRENDIPINE [Concomitant]
     Route: 065
  12. FLUOXETINE HYDROCHLORIDE [Concomitant]
     Route: 065
  13. IRON (UNSPECIFIED) [Concomitant]
     Route: 065

REACTIONS (15)
  - ANAEMIA [None]
  - ATELECTASIS [None]
  - ATRIAL FIBRILLATION [None]
  - CARDIAC FAILURE [None]
  - CATARACT [None]
  - DEATH [None]
  - DEPRESSION [None]
  - DIARRHOEA [None]
  - DRUG INTOLERANCE [None]
  - FOLATE DEFICIENCY [None]
  - GASTRIC DISORDER [None]
  - GASTRITIS [None]
  - HAEMORRHOIDS [None]
  - IRON DEFICIENCY ANAEMIA [None]
  - PLEURAL EFFUSION [None]
